FAERS Safety Report 9408978 (Version 1)
Quarter: 2013Q3

REPORT INFORMATION
  Report Type: Spontaneous
  Country: US (occurrence: None)
  Receive Date: 20130717
  Receipt Date: 20130717
  Transmission Date: 20140515
  Serious: Yes (Life-Threatening)
  Sender: FDA-Public Use
  Company Number: None

PATIENT
  Age: 80 Year
  Sex: Female
  Weight: 104.33 kg

DRUGS (1)
  1. RESTASIS [Suspect]
     Indication: DRY EYE
     Route: 047
     Dates: start: 20130715, end: 20130716

REACTIONS (7)
  - Eye irritation [None]
  - Throat irritation [None]
  - Bronchitis [None]
  - Dysphonia [None]
  - Dry mouth [None]
  - Lip dry [None]
  - Feeling abnormal [None]
